FAERS Safety Report 8027754-X (Version None)
Quarter: 2012Q1

REPORT INFORMATION
  Report Type: 
  Country: None (occurrence: None)
  Receive Date: 20120106
  Receipt Date: 20120106
  Transmission Date: 20120608
  Serious: Yes (Life-Threatening, Hospitalization)
  Sender: FDA-Public Use
  Company Number: None

PATIENT
  Age: 25 Year
  Sex: Male
  Weight: 163.29 kg

DRUGS (1)
  1. HALDOL [Suspect]
     Indication: BIPOLAR I DISORDER
     Dosage: UNKNOWN
     Route: 048
     Dates: start: 20110103, end: 20110104

REACTIONS (5)
  - TREMOR [None]
  - SWOLLEN TONGUE [None]
  - DYSPNOEA [None]
  - AGITATION [None]
  - TONGUE DISCOLOURATION [None]
